FAERS Safety Report 8357148-9 (Version None)
Quarter: 2012Q2

REPORT INFORMATION
  Report Type: 
  Country: None (occurrence: None)
  Receive Date: 20120514
  Receipt Date: 20120504
  Transmission Date: 20120825
  Serious: Yes (Death, Hospitalization, Other)
  Sender: FDA-Public Use
  Company Number: DE-BRISTOL-MYERS SQUIBB COMPANY-16577611

PATIENT
  Sex: Female
  Weight: 3 kg

DRUGS (8)
  1. HYDROCORTISONE ACETATE [Concomitant]
     Route: 064
  2. METFORMIN HCL [Suspect]
     Route: 064
  3. LEVOTHYROXINE SODIUM [Concomitant]
     Route: 064
  4. CLOTRIMAZOLE [Concomitant]
     Route: 064
  5. FOLIO [Concomitant]
     Route: 064
  6. APSOMOL [Concomitant]
     Route: 064
  7. CETIRIZINE HCL [Concomitant]
     Route: 064
  8. PROGESTERONE [Concomitant]
     Route: 064

REACTIONS (2)
  - HYPOPLASTIC LEFT HEART SYNDROME [None]
  - TURNER'S SYNDROME [None]
